FAERS Safety Report 8339366-9 (Version None)
Quarter: 2012Q2

REPORT INFORMATION
  Report Type: 
  Country: None (occurrence: None)
  Receive Date: 20120507
  Receipt Date: 20120427
  Transmission Date: 20120825
  Serious: Yes (Other)
  Sender: FDA-Public Use
  Company Number: US-US-EMD SERONO, INC.-7067289

PATIENT
  Sex: Male

DRUGS (2)
  1. EGRIFTA [Suspect]
     Indication: LIPODYSTROPHY ACQUIRED
     Route: 058
     Dates: end: 20110606
  2. TRICOR [Concomitant]
     Dates: start: 20000101, end: 20110101

REACTIONS (2)
  - IGA NEPHROPATHY [None]
  - BLOOD CREATINE PHOSPHOKINASE INCREASED [None]
